FAERS Safety Report 4395529-9 (Version None)
Quarter: 2004Q3

REPORT INFORMATION
  Report Type: 
  Country: None (occurrence: None)
  Receive Date: 20040712
  Receipt Date: 20040712
  Transmission Date: 20050211
  Serious: Yes (Death, Hospitalization)
  Sender: FDA-Public Use
  Company Number: None

PATIENT
  Age: 73 Year
  Sex: Female
  Weight: 75.2971 kg

DRUGS (6)
  1. INFLIXIMAB [Suspect]
     Indication: RHEUMATOID ARTHRITIS
     Dosage: 3 MG/KG Q 8 WEEKS INTRAVENOUS
     Route: 042
     Dates: start: 20031001, end: 20040601
  2. FOLIC ACID [Concomitant]
  3. VERELAN [Concomitant]
  4. AMILORIDE [Concomitant]
  5. CELEBREX [Concomitant]
  6. SYNTHROID [Concomitant]

REACTIONS (5)
  - HISTOPLASMOSIS DISSEMINATED [None]
  - RENAL FAILURE [None]
  - RENAL TRANSPLANT [None]
  - RESPIRATORY FAILURE [None]
  - SEPSIS [None]
